FAERS Safety Report 9288342 (Version 1)
Quarter: 2013Q2

REPORT INFORMATION
  Report Type: Spontaneous
  Country: US (occurrence: US)
  Receive Date: 20130514
  Receipt Date: 20130514
  Transmission Date: 20140414
  Serious: Yes (Other)
  Sender: FDA-Public Use
  Company Number: US-PFIZER INC-2013143914

PATIENT
  Age: 67 Year
  Sex: Male
  Weight: 90.7 kg

DRUGS (4)
  1. LISINOPRIL [Suspect]
     Indication: HYPERTENSION
     Dosage: 20MG DAILY
  2. LYRICA [Suspect]
     Indication: TRIGEMINAL NEURALGIA
     Dosage: 150 MG TWO TIMES A DAY
     Dates: start: 2009
  3. SIMVASTATIN [Concomitant]
     Dosage: 20MG DAILY
  4. LOSARTAN [Concomitant]
     Indication: HYPERTENSION
     Dosage: 50 MG DAILY
     Dates: start: 201304

REACTIONS (4)
  - Tooth infection [Unknown]
  - Drug ineffective [Unknown]
  - Toothache [Recovered/Resolved]
  - Cough [Unknown]
